FAERS Safety Report 8336005-8 (Version None)
Quarter: 2012Q2

REPORT INFORMATION
  Report Type: 
  Country: None (occurrence: None)
  Receive Date: 20120501
  Receipt Date: 20120501
  Transmission Date: 20120825
  Serious: Yes (Hospitalization)
  Sender: FDA-Public Use
  Company Number: None

PATIENT
  Age: 31 Year
  Sex: Male
  Weight: 91.8 kg

DRUGS (2)
  1. HALOPERIDOL [Suspect]
     Dosage: 5 MG PRN IM
     Route: 030
     Dates: start: 20120421, end: 20120426
  2. HALOPERIDOL [Suspect]
     Indication: SCHIZOAFFECTIVE DISORDER
     Dosage: 4 MG BID PO
     Route: 048
     Dates: start: 20120421, end: 20120426

REACTIONS (9)
  - DYSTONIA [None]
  - HYPERTENSION [None]
  - TACHYCARDIA [None]
  - INAPPROPRIATE SCHEDULE OF DRUG ADMINISTRATION [None]
  - AKATHISIA [None]
  - RHABDOMYOLYSIS [None]
  - MUSCLE RIGIDITY [None]
  - ANXIETY [None]
  - EXTRAPYRAMIDAL DISORDER [None]
